FAERS Safety Report 13032721 (Version 1)
Quarter: 2016Q4

REPORT INFORMATION
  Report Type: Spontaneous
  Country: FR (occurrence: FR)
  Receive Date: 20161215
  Receipt Date: 20161215
  Transmission Date: 20170207
  Serious: Yes (Hospitalization)
  Sender: FDA-Public Use
  Company Number: FR-009507513-1612FRA006482

PATIENT
  Age: 0 Day
  Sex: Female
  Weight: 73 kg

DRUGS (13)
  1. INVANZ [Suspect]
     Active Substance: ERTAPENEM SODIUM
     Indication: OSTEOMYELITIS
     Dosage: 1 G, BID
     Route: 042
     Dates: start: 20160525, end: 20160531
  2. TRIFLUCAN [Concomitant]
     Active Substance: FLUCONAZOLE
     Indication: OSTEOMYELITIS
     Dosage: 400 MG, QD
     Route: 048
     Dates: start: 20160309
  3. IMIPENEM AND CILASTATIN [Suspect]
     Active Substance: CILASTATIN SODIUM\IMIPENEM
     Indication: OSTEOMYELITIS
     Dosage: 1 DF, TID
     Route: 042
     Dates: start: 20160602, end: 20160609
  4. PRIMPERAN [Concomitant]
     Active Substance: METOCLOPRAMIDE HYDROCHLORIDE
  5. TARGOCID [Concomitant]
     Active Substance: TEICOPLANIN
     Indication: OSTEOMYELITIS
     Dosage: 400 MG, Q12H
     Route: 042
     Dates: start: 20160525, end: 201605
  6. ESIDREX [Concomitant]
     Active Substance: HYDROCHLOROTHIAZIDE
     Dosage: 25 MG, QD
     Route: 048
  7. PANTOPRAZOLE [Concomitant]
     Active Substance: PANTOPRAZOLE SODIUM
     Dosage: 20 MG, QD
     Route: 048
  8. AERIUS [Concomitant]
     Active Substance: DESLORATADINE
     Route: 048
  9. AMLODIPINE [Concomitant]
     Active Substance: AMLODIPINE BESYLATE
     Dosage: 10 MG, QD
     Route: 048
  10. DEROXAT [Concomitant]
     Active Substance: PAROXETINE HYDROCHLORIDE
     Dosage: 20 MG, QD
     Route: 048
  11. DIFFU-K [Concomitant]
     Active Substance: POTASSIUM CHLORIDE
     Route: 048
  12. MONOPROST [Concomitant]
     Active Substance: LATANOPROST
  13. TARGOCID [Concomitant]
     Active Substance: TEICOPLANIN
     Dosage: 400 MG, QD
     Route: 042
     Dates: start: 201605

REACTIONS (2)
  - Confusional state [Recovered/Resolved]
  - Liver function test increased [Recovered/Resolved]

NARRATIVE: CASE EVENT DATE: 20160530
